FAERS Safety Report 24860262 (Version 1)
Quarter: 2025Q1

REPORT INFORMATION
  Report Type: Spontaneous
  Country: RO (occurrence: RO)
  Receive Date: 20250120
  Receipt Date: 20250120
  Transmission Date: 20250409
  Serious: Yes (Other)
  Sender: ROCHE
  Company Number: RO-ROCHE-10000183136

PATIENT
  Age: 48 Year

DRUGS (7)
  1. ALECTINIB [Suspect]
     Active Substance: ALECTINIB
     Indication: Lung adenocarcinoma
     Route: 065
  2. ZOMETA [Suspect]
     Active Substance: ZOLEDRONIC ACID
     Indication: Lung adenocarcinoma
     Route: 065
  3. LORLATINIB [Concomitant]
     Active Substance: LORLATINIB
  4. ATEZOLIZUMAB [Concomitant]
     Active Substance: ATEZOLIZUMAB
     Indication: Lung adenocarcinoma
  5. BEVACIZUMAB [Concomitant]
     Active Substance: BEVACIZUMAB
  6. CARBOPLATIN [Concomitant]
     Active Substance: CARBOPLATIN
  7. PACLITAXEL [Concomitant]
     Active Substance: PACLITAXEL

REACTIONS (1)
  - Disease progression [Unknown]
